FAERS Safety Report 7927829-7 (Version None)
Quarter: 2011Q4

REPORT INFORMATION
  Report Type: 
  Country: None (occurrence: None)
  Receive Date: 20111118
  Receipt Date: 20111109
  Transmission Date: 20120403
  Serious: Yes (Other)
  Sender: FDA-Public Use
  Company Number: JP-JNJFOC-20111105176

PATIENT

DRUGS (3)
  1. RISPERDAL [Suspect]
     Indication: MENTAL RETARDATION
     Route: 048
  2. RISPERDAL [Suspect]
     Indication: AUTISM
     Route: 048
  3. RISPERDAL [Suspect]
     Indication: ATTENTION DEFICIT/HYPERACTIVITY DISORDER
     Route: 048

REACTIONS (5)
  - DRUG INEFFECTIVE [None]
  - SOMNOLENCE [None]
  - DISTURBANCE IN ATTENTION [None]
  - PANIC DISORDER [None]
  - AGGRESSION [None]
